FAERS Safety Report 13128296 (Version 2)
Quarter: 2017Q2

REPORT INFORMATION
  Report Type: Report from Study
  Country: None (occurrence: BR)
  Receive Date: 20170118
  Receipt Date: 20170517
  Transmission Date: 20170830
  Serious: Yes (Other)
  Sender: FDA-Public Use
  Company Number: BR-ABBVIE-17P-020-1844107-00

PATIENT
  Age: 84 Year
  Sex: Female
  Weight: 80 kg

DRUGS (8)
  1. SYNTHROID [Suspect]
     Active Substance: LEVOTHYROXINE SODIUM
     Indication: HYPOTHYROIDISM
     Dosage: UNIT DOSE: ^1^; MORNING/FASTING
     Route: 048
  2. INDAPEN [Concomitant]
     Active Substance: INDAPAMIDE
     Indication: BLOOD PRESSURE MEASUREMENT
     Dosage: DAILY DOSE: ^1^; MORNING
     Route: 065
  3. VITALUX PLUS [Concomitant]
     Active Substance: VITAMINS
     Indication: VITAMIN SUPPLEMENTATION
     Dosage: MORNING
     Route: 065
  4. GARDENAL [Concomitant]
     Active Substance: PHENOBARBITAL
     Indication: SEIZURE
     Dosage: DAILY DOSE:^1^
     Route: 065
  5. ENALAPRIL MALEATE. [Concomitant]
     Active Substance: ENALAPRIL MALEATE
     Indication: BLOOD PRESSURE MEASUREMENT
     Dosage: DAILY DOSE: ^2^; MORNING
     Route: 065
  6. INDAPEN [Concomitant]
     Active Substance: INDAPAMIDE
     Indication: DIURETIC THERAPY
  7. UC II [Concomitant]
     Indication: ARTHROPATHY
     Dosage: DAILY DOSE: ^1^
     Route: 065
  8. OMEGA 3 [Concomitant]
     Active Substance: OMEGA-3 FATTY ACIDS
     Indication: OSTEOPOROSIS
     Dosage: DAILY DOSE: ^1^
     Route: 065

REACTIONS (5)
  - Arthralgia [Not Recovered/Not Resolved]
  - Erythema [Recovering/Resolving]
  - Wound [Recovering/Resolving]
  - Peripheral swelling [Recovered/Resolved]
  - Peripheral swelling [Recovering/Resolving]

NARRATIVE: CASE EVENT DATE: 20161115
